FAERS Safety Report 6167066-2 (Version None)
Quarter: 2009Q2

REPORT INFORMATION
  Report Type: 
  Country: None (occurrence: None)
  Receive Date: 20090422
  Receipt Date: 20090414
  Transmission Date: 20091009
  Serious: Yes (Hospitalization, Other)
  Sender: FDA-Public Use
  Company Number: 2009SP008140

PATIENT
  Age: 56 Year
  Sex: Female
  Weight: 40 kg

DRUGS (9)
  1. TEMODAL [Suspect]
     Indication: GLIOBLASTOMA MULTIFORME
     Dosage: 220 MG; QD; PO
     Route: 048
     Dates: start: 20090126, end: 20090130
  2. TEMODAL [Suspect]
     Indication: GLIOBLASTOMA MULTIFORME
     Dosage: 220 MG; QD; PO
     Route: 048
     Dates: start: 20090223, end: 20090227
  3. TEMODAL [Suspect]
     Indication: GLIOBLASTOMA MULTIFORME
     Dosage: 220 MG; QD; PO
     Route: 048
     Dates: start: 20090323, end: 20090327
  4. BACTRIM [Suspect]
     Indication: PNEUMONIA
     Dosage: 1 DF; ; PO
     Route: 048
     Dates: start: 20090126, end: 20090327
  5. BACTRIM [Suspect]
     Indication: PROPHYLAXIS
     Dosage: 1 DF; ; PO
     Route: 048
     Dates: start: 20090126, end: 20090327
  6. EXCEGRAN [Concomitant]
  7. SELBEX [Concomitant]
  8. NAUZELIN [Concomitant]
  9. ZOFRAN [Concomitant]

REACTIONS (5)
  - HEADACHE [None]
  - MYALGIA [None]
  - NEUROLEPTIC MALIGNANT SYNDROME [None]
  - PYREXIA [None]
  - RHABDOMYOLYSIS [None]
